FAERS Safety Report 20743416 (Version 1)
Quarter: 2022Q2

REPORT INFORMATION
  Report Type: Spontaneous
  Country: US (occurrence: US)
  Receive Date: 20220425
  Receipt Date: 20220425
  Transmission Date: 20220721
  Serious: Yes (Hospitalization, Other)
  Sender: FDA-Public Use
  Company Number: US-APOTEX-2022AP006266

PATIENT
  Age: 53 Year
  Sex: Male

DRUGS (5)
  1. CLOPIDOGREL [Suspect]
     Active Substance: CLOPIDOGREL BISULFATE
     Indication: Acute myocardial infarction
     Dosage: UNK
     Route: 065
  2. CLOPIDOGREL [Suspect]
     Active Substance: CLOPIDOGREL BISULFATE
     Indication: Vascular stent thrombosis
  3. ASPIRIN [Suspect]
     Active Substance: ASPIRIN
     Indication: Acute myocardial infarction
     Dosage: UNK
     Route: 065
  4. ASPIRIN [Suspect]
     Active Substance: ASPIRIN
     Indication: Vascular stent thrombosis
  5. RIVAROXABAN [Concomitant]
     Active Substance: RIVAROXABAN
     Indication: Vascular stent thrombosis
     Dosage: UNK
     Route: 065

REACTIONS (2)
  - Acute respiratory failure [Recovering/Resolving]
  - Pulmonary alveolar haemorrhage [Recovering/Resolving]
